FAERS Safety Report 25606453 (Version 1)
Quarter: 2025Q3

REPORT INFORMATION
  Report Type: Spontaneous
  Country: GB (occurrence: GB)
  Receive Date: 20250725
  Receipt Date: 20250725
  Transmission Date: 20251020
  Serious: Yes (Other)
  Sender: HIKMA
  Company Number: GB-MHRA-36114405

PATIENT

DRUGS (2)
  1. LEVOFLOXACIN [Suspect]
     Active Substance: LEVOFLOXACIN
     Indication: Product used for unknown indication
     Route: 065
  2. PREDNISOLONE [Concomitant]
     Active Substance: PREDNISOLONE
     Indication: Product used for unknown indication
     Route: 065

REACTIONS (8)
  - Fatigue [Unknown]
  - Musculoskeletal stiffness [Recovered/Resolved]
  - Tendonitis [Unknown]
  - Pain in extremity [Recovered/Resolved]
  - Collagen disorder [Unknown]
  - Rotator cuff syndrome [Unknown]
  - Premature ageing [Unknown]
  - Physical disability [Unknown]
